FAERS Safety Report 21919545 (Version 3)
Quarter: 2025Q4

REPORT INFORMATION
  Report Type: Spontaneous
  Country: US (occurrence: US)
  Receive Date: 20230127
  Receipt Date: 20251107
  Transmission Date: 20260118
  Serious: No
  Sender: ALNYLAM PHARMACEUTICALS
  Company Number: US-ALNYLAM PHARMACEUTICALS, INC.-ALN-2023-000336

PATIENT
  Age: 71 Year

DRUGS (2)
  1. ONPATTRO [Suspect]
     Active Substance: PATISIRAN SODIUM
     Indication: Hereditary neuropathic amyloidosis
     Dosage: UNK
     Route: 065
  2. VYNDAMAX [Concomitant]
     Active Substance: TAFAMIDIS
     Indication: Product used for unknown indication
     Dosage: UNK
     Route: 065

REACTIONS (3)
  - Abdominal pain upper [Unknown]
  - Influenza [Unknown]
  - Product dose omission issue [Unknown]
